FAERS Safety Report 7465198-X (Version None)
Quarter: 2011Q2

REPORT INFORMATION
  Report Type: 
  Country: None (occurrence: None)
  Receive Date: 20110509
  Receipt Date: 20110425
  Transmission Date: 20111010
  Serious: Yes (Other)
  Sender: FDA-Public Use
  Company Number: PHHY2011US35321

PATIENT
  Sex: Male

DRUGS (3)
  1. TRAZODONE [Concomitant]
     Dosage: 150-200 MG
  2. TASIGNA [Suspect]
     Indication: CHRONIC MYELOID LEUKAEMIA
     Dosage: 400 MG, BID
     Route: 048
     Dates: start: 20100901, end: 20110301
  3. FERROUS SULFATE TAB [Concomitant]
     Dosage: 325 MG, TID

REACTIONS (11)
  - HAEMOPTYSIS [None]
  - PLATELET COUNT DECREASED [None]
  - EPISTAXIS [None]
  - BLOOD ALBUMIN DECREASED [None]
  - BLAST CRISIS IN MYELOGENOUS LEUKAEMIA [None]
  - DRY SKIN [None]
  - ASPARTATE AMINOTRANSFERASE INCREASED [None]
  - GINGIVAL BLEEDING [None]
  - FATIGUE [None]
  - BLOOD ALKALINE PHOSPHATASE INCREASED [None]
  - BLOOD BLISTER [None]
